FAERS Safety Report 14989046 (Version 1)
Quarter: 2018Q2

REPORT INFORMATION
  Report Type: Spontaneous
  Country: FR (occurrence: FR)
  Receive Date: 20180608
  Receipt Date: 20180608
  Transmission Date: 20180711
  Serious: Yes (Congenital Anomaly)
  Sender: FDA-Public Use
  Company Number: FR-ROCHE-2096461

PATIENT

DRUGS (3)
  1. CELLCEPT [Suspect]
     Active Substance: MYCOPHENOLATE MOFETIL\MYCOPHENOLATE MOFETIL HYDROCHLORIDE
     Indication: PRODUCT USED FOR UNKNOWN INDICATION
     Route: 064
  2. IMUREL [Concomitant]
     Active Substance: AZATHIOPRINE SODIUM
  3. PROGRAFT [Concomitant]
     Active Substance: TACROLIMUS

REACTIONS (3)
  - Foetal exposure during pregnancy [Unknown]
  - Congenital eye disorder [Unknown]
  - Limb malformation [Unknown]
